FAERS Safety Report 13246232 (Version 1)
Quarter: 2017Q1

REPORT INFORMATION
  Report Type: Spontaneous
  Country: PT (occurrence: PT)
  Receive Date: 20170217
  Receipt Date: 20170217
  Transmission Date: 20170428
  Serious: Yes (Other)
  Sender: FDA-Public Use
  Company Number: PT-PFIZER INC-2017044277

PATIENT
  Age: 81 Year
  Sex: Female

DRUGS (2)
  1. LEDERTREXATO [Suspect]
     Active Substance: METHOTREXATE SODIUM
     Indication: PSORIASIS
     Dosage: 20 MG (8X2,5MG), WEEKLY
     Route: 048
     Dates: start: 2015, end: 2016
  2. SALAZOPIRINA EN [Concomitant]
     Active Substance: SULFASALAZINE
     Indication: ARTHRALGIA
     Dosage: UNK

REACTIONS (2)
  - Visual acuity reduced [Not Recovered/Not Resolved]
  - Squamous cell carcinoma of skin [Recovered/Resolved]

NARRATIVE: CASE EVENT DATE: 2015
